FAERS Safety Report 11413735 (Version 1)
Quarter: 2015Q3

REPORT INFORMATION
  Report Type: Spontaneous
  Country: GB (occurrence: GB)
  Receive Date: 20150824
  Receipt Date: 20150824
  Transmission Date: 20151125
  Serious: Yes (Other)
  Sender: FDA-Public Use
  Company Number: GB-PFIZER INC-2015277157

PATIENT
  Age: 65 Year
  Sex: Male

DRUGS (15)
  1. ATORVASTATIN [Concomitant]
     Active Substance: ATORVASTATIN
     Dosage: UNK
  2. CARBOCISTEINE [Concomitant]
     Active Substance: CARBOCYSTEINE
     Dosage: UNK
  3. VENTOLIN [Concomitant]
     Active Substance: ALBUTEROL SULFATE
     Dosage: UNK
  4. ALENDRONIC ACID [Concomitant]
     Active Substance: ALENDRONIC ACID
     Dosage: UNK
  5. FUROSEMIDE. [Concomitant]
     Active Substance: FUROSEMIDE
     Indication: OEDEMA
     Dosage: 40 MG, 3X/DAY
     Route: 048
  6. PREDNISOLONE. [Concomitant]
     Active Substance: PREDNISOLONE
     Dosage: UNK
  7. LATANOPROST. [Concomitant]
     Active Substance: LATANOPROST
     Dosage: UNK
     Route: 047
  8. VITAMIN D3 [Concomitant]
     Active Substance: CHOLECALCIFEROL
     Dosage: UNK
  9. DOXYCYCLINE MONOHYDRATE [Suspect]
     Active Substance: DOXYCYCLINE
     Indication: PSEUDOMONAS INFECTION
     Dosage: 100 MG, 2X/DAY
     Dates: start: 20141103, end: 20150624
  10. PHYLLOCONTIN [Concomitant]
     Active Substance: AMINOPHYLLINE
     Indication: CHRONIC OBSTRUCTIVE PULMONARY DISEASE
     Dosage: 225 MG, 2X/DAY
     Route: 048
  11. SEEBRI BREEZHALER [Concomitant]
     Active Substance: GLYCOPYRROLATE
     Dosage: UNK
  12. WARFARIN [Concomitant]
     Active Substance: WARFARIN
     Dosage: AS PER INTERNATIONAL NORMALIZED RATIO
     Route: 048
  13. ORAMORPH [Concomitant]
     Active Substance: MORPHINE SULFATE
     Dosage: UNK
  14. CALCIUM [Concomitant]
     Active Substance: CALCIUM
     Dosage: UNK
  15. VERAPAMIL [Concomitant]
     Active Substance: VERAPAMIL HYDROCHLORIDE
     Indication: ATRIAL FIBRILLATION
     Dosage: 240 MG, 2X/DAY
     Route: 048

REACTIONS (3)
  - Photosensitivity reaction [Recovering/Resolving]
  - Skin hyperpigmentation [Recovering/Resolving]
  - Sunburn [Recovering/Resolving]

NARRATIVE: CASE EVENT DATE: 20150326
